FAERS Safety Report 8976612 (Version 2)
Quarter: 2013Q1

REPORT INFORMATION
  Report Type: Spontaneous
  Country: US (occurrence: US)
  Receive Date: 20121220
  Receipt Date: 20130201
  Transmission Date: 20140127
  Serious: Yes (Death, Other)
  Sender: FDA-Public Use
  Company Number: US-PFIZER INC-2012318377

PATIENT
  Age: 86 Year
  Sex: Female

DRUGS (1)
  1. REVATIO [Suspect]
     Indication: PULMONARY ARTERIAL HYPERTENSION
     Dosage: 20MG 2X/DAY
     Dates: start: 20120829

REACTIONS (2)
  - Pulmonary hypertension [Fatal]
  - Pulmonary fibrosis [Fatal]
